FAERS Safety Report 6928176-2 (Version None)
Quarter: 2010Q3

REPORT INFORMATION
  Report Type: 
  Country: None (occurrence: None)
  Receive Date: 20100817
  Receipt Date: 20100810
  Transmission Date: 20110219
  Serious: Yes (Death, Life-Threatening, Hospitalization)
  Sender: FDA-Public Use
  Company Number: IN-ROCHE-671212

PATIENT
  Sex: Male
  Weight: 73 kg

DRUGS (16)
  1. BEVACIZUMAB [Suspect]
     Indication: METASTATIC RENAL CELL CARCINOMA
     Dosage: DOSE: 10 MG/KG; DRUG DISCONTINUED
     Route: 042
     Dates: start: 20090807, end: 20091119
  2. TEMSIROLIMUS [Suspect]
     Indication: METASTATIC RENAL CELL CARCINOMA
     Dosage: DRUG DISCONTINUED
     Route: 042
     Dates: start: 20090807, end: 20091119
  3. AMLODAC [Concomitant]
     Indication: HYPERTENSION
     Route: 048
     Dates: start: 20090821
  4. AMLODAC [Concomitant]
     Route: 048
     Dates: start: 20091022, end: 20091121
  5. AMLODAC [Concomitant]
     Route: 048
     Dates: end: 20091203
  6. PANTOPRAZOLE [Concomitant]
     Indication: GASTRITIS PROPHYLAXIS
     Route: 048
     Dates: start: 20090824, end: 20091121
  7. CALPOL [Concomitant]
     Route: 048
     Dates: start: 20091119, end: 20091121
  8. ALPRAZOLAM [Concomitant]
     Indication: INSOMNIA
     Dosage: DRUG: ALPREX
     Route: 048
     Dates: start: 20091119, end: 20091121
  9. VOGLIBOSE [Concomitant]
     Indication: DIABETES MELLITUS
     Dosage: DRUG: PPG
     Route: 048
     Dates: start: 20091119, end: 20091121
  10. VOGLIBOSE [Concomitant]
     Route: 048
     Dates: start: 20090827
  11. FORACORT [Concomitant]
     Dosage: 1 PUFF BID; DOSE 200 MICROGRAM
     Route: 055
     Dates: start: 20091121, end: 20091210
  12. CREMAFFIN [Concomitant]
     Indication: CONSTIPATION PROPHYLAXIS
     Dosage: ONCE
     Route: 048
     Dates: start: 20091112, end: 20091121
  13. BETADINE [Concomitant]
     Dosage: BETADINE GARGLES, 6 TIMES
     Dates: start: 20091112, end: 20091121
  14. GLIPIZIDE [Concomitant]
     Indication: DIABETES MELLITUS
     Route: 048
     Dates: start: 19890101
  15. GLIPIZIDE [Concomitant]
     Dosage: DRUG NAME: ZORYL
     Route: 048
     Dates: start: 20091119, end: 20091121
  16. GLIMEPIRIDE [Concomitant]
     Dosage: DRUG: ZORYL
     Route: 048
     Dates: start: 20090827, end: 20091121

REACTIONS (4)
  - CARDIO-RESPIRATORY ARREST [None]
  - COLITIS [None]
  - MULTI-ORGAN FAILURE [None]
  - SEPSIS [None]
